FAERS Safety Report 8520589-0 (Version None)
Quarter: 2012Q3

REPORT INFORMATION
  Report Type: 
  Country: None (occurrence: None)
  Receive Date: 20120719
  Receipt Date: 20120713
  Transmission Date: 20120928
  Serious: Yes (Other)
  Sender: FDA-Public Use
  Company Number: US-PFIZER INC-2012170079

PATIENT

DRUGS (1)
  1. LYRICA [Suspect]
     Dosage: UNK

REACTIONS (11)
  - MUSCULOSKELETAL STIFFNESS [None]
  - PAIN IN EXTREMITY [None]
  - FEELING ABNORMAL [None]
  - CHEST DISCOMFORT [None]
  - RESTLESSNESS [None]
  - HYPOAESTHESIA [None]
  - BACK PAIN [None]
  - FATIGUE [None]
  - MUSCULOSKELETAL PAIN [None]
  - DYSPNOEA [None]
  - IMPAIRED WORK ABILITY [None]
